FAERS Safety Report 4422987-3 (Version None)
Quarter: 2004Q3

REPORT INFORMATION
  Report Type: 
  Country: None (occurrence: None)
  Receive Date: 20040805
  Receipt Date: 20040721
  Transmission Date: 20050211
  Serious: Yes (Hospitalization)
  Sender: FDA-Public Use
  Company Number: US013399

PATIENT
  Age: 65 Year
  Sex: Male

DRUGS (2)
  1. ACTIQ [Suspect]
     Indication: INTERVERTEBRAL DISC DEGENERATION
     Dosage: 400 MG QID BUCCAL
     Route: 002
  2. OXYCONTIN [Concomitant]

REACTIONS (3)
  - DRUG ABUSER [None]
  - DRUG WITHDRAWAL SYNDROME [None]
  - MEDICATION ERROR [None]
